FAERS Safety Report 8051124-1 (Version None)
Quarter: 2012Q1

REPORT INFORMATION
  Report Type: 
  Country: None (occurrence: None)
  Receive Date: 20120117
  Receipt Date: 20120112
  Transmission Date: 20120608
  Serious: Yes (Death)
  Sender: FDA-Public Use
  Company Number: PHHY2012EC003308

PATIENT
  Sex: Male

DRUGS (3)
  1. ANALGESICS [Concomitant]
     Dosage: UNK
  2. EXFORGE [Suspect]
     Indication: HYPERTENSION
     Dosage: 3 TABLET (160/5MG) DAILY
     Route: 048
     Dates: start: 20100104
  3. ANTIBIOTICS [Concomitant]
     Dosage: UNK

REACTIONS (1)
  - DEATH [None]
